FAERS Safety Report 23700312 (Version 2)
Quarter: 2024Q2

REPORT INFORMATION
  Report Type: Spontaneous
  Country: IT (occurrence: None)
  Receive Date: 20240403
  Receipt Date: 20240404
  Transmission Date: 20240717
  Serious: Yes (Hospitalization)
  Sender: FDA-Public Use
  Company Number: None

PATIENT
  Age: 50 Year
  Sex: Female

DRUGS (1)
  1. OCREVUS [Suspect]
     Active Substance: OCRELIZUMAB
     Indication: Relapsing-remitting multiple sclerosis
     Dosage: THERAPY: 600MG IV EVERY 6 MONTHS?OCRELIZUMAB I CYCLE 10/2/20 - 24/02/2020, II CYCLE 26/08/2020; III
     Route: 042
     Dates: start: 20200210, end: 20200224

REACTIONS (2)
  - Encephalitis enteroviral [Recovering/Resolving]
  - Acute interstitial pneumonitis [Recovering/Resolving]

NARRATIVE: CASE EVENT DATE: 20240223
